FAERS Safety Report 6834417-2 (Version None)
Quarter: 2010Q3

REPORT INFORMATION
  Report Type: 
  Country: None (occurrence: None)
  Receive Date: 20100712
  Receipt Date: 20070413
  Transmission Date: 20110219
  Serious: Yes (Other)
  Sender: FDA-Public Use
  Company Number: US-PFIZER INC-2007030841

PATIENT
  Sex: Female
  Weight: 79.4 kg

DRUGS (2)
  1. CHANTIX [Suspect]
     Indication: EX-TOBACCO USER
     Dates: start: 20070301, end: 20070330
  2. LEXAPRO [Suspect]
     Indication: DEPRESSION
     Dates: end: 20070330

REACTIONS (7)
  - CRYING [None]
  - DEPRESSION [None]
  - DIZZINESS [None]
  - LETHARGY [None]
  - MENTAL IMPAIRMENT [None]
  - NAUSEA [None]
  - TREMOR [None]
